FAERS Safety Report 9339099 (Version 1)
Quarter: 2013Q2

REPORT INFORMATION
  Report Type: Spontaneous
  Country: US (occurrence: US)
  Receive Date: 20130610
  Receipt Date: 20130610
  Transmission Date: 20140414
  Serious: No
  Sender: FDA-Public Use
  Company Number: US-ABBOTT-13P-163-1044463-00

PATIENT
  Sex: 0

DRUGS (1)
  1. POTASSIUM CHLORIDE EXTENDED-RELEASE [Suspect]
     Indication: PRODUCT USED FOR UNKNOWN INDICATION
     Dosage: FOUR 10 MEQ TABLETS DAILY
     Dates: start: 201204

REACTIONS (2)
  - Medication residue present [Unknown]
  - Blood potassium abnormal [Unknown]
